FAERS Safety Report 12676637 (Version 2)
Quarter: 2016Q3

REPORT INFORMATION
  Report Type: Spontaneous
  Country: IL (occurrence: IL)
  Receive Date: 20160823
  Receipt Date: 20160914
  Transmission Date: 20161109
  Serious: Yes (Death, Hospitalization)
  Sender: FDA-Public Use
  Company Number: IL-CELGENEUS-ISR-2016066919

PATIENT
  Age: 70 Year
  Sex: Male

DRUGS (1)
  1. IMNOVID [Suspect]
     Active Substance: POMALIDOMIDE
     Indication: PLASMA CELL MYELOMA
     Dosage: 4 MILLIGRAM
     Route: 048
     Dates: start: 20160524, end: 20160607

REACTIONS (5)
  - Plasma cell myeloma [Fatal]
  - Sinusitis [Unknown]
  - Periorbital cellulitis [Unknown]
  - Pneumonia [Recovered/Resolved]
  - Thrombocytopenia [Recovered/Resolved]

NARRATIVE: CASE EVENT DATE: 20160607
